FAERS Safety Report 4660023-4 (Version None)
Quarter: 2005Q2

REPORT INFORMATION
  Report Type: 
  Country: None (occurrence: None)
  Receive Date: 20050512
  Receipt Date: 20050504
  Transmission Date: 20051028
  Serious: Yes (Death)
  Sender: FDA-Public Use
  Company Number: DE-BOEHRINGER INGELHEIM PHARMACEUTICALS, INC.-2005-DE-01725DE

PATIENT
  Sex: Male

DRUGS (1)
  1. AGGRENOX [Suspect]
     Route: 048

REACTIONS (3)
  - EAR HAEMORRHAGE [None]
  - EPISTAXIS [None]
  - VOMITING [None]
